FAERS Safety Report 7680471-8 (Version None)
Quarter: 2011Q3

REPORT INFORMATION
  Report Type: 
  Country: None (occurrence: None)
  Receive Date: 20110812
  Receipt Date: 20110811
  Transmission Date: 20111222
  Serious: Yes (Death)
  Sender: FDA-Public Use
  Company Number: JP-SANOFI-AVENTIS-2011SA051576

PATIENT
  Sex: Female
  Weight: 63.3 kg

DRUGS (11)
  1. PLAVIX [Suspect]
     Route: 048
     Dates: start: 20100617, end: 20101210
  2. ASPIRIN [Concomitant]
     Route: 048
     Dates: start: 20100616, end: 20101210
  3. NITRODERM [Concomitant]
     Route: 062
     Dates: start: 20100616, end: 20100729
  4. ADALAT [Concomitant]
     Indication: HYPERTENSION
     Dosage: 20GM ONCE AND 40MG ONCE A DAY
     Route: 048
     Dates: start: 20100616, end: 20101210
  5. CALBLOCK [Concomitant]
     Indication: HYPERTENSION
     Route: 048
     Dates: start: 20100616, end: 20101210
  6. AMARYL [Concomitant]
     Indication: DIABETES MELLITUS
     Route: 048
     Dates: start: 20100616, end: 20101210
  7. LASIX [Concomitant]
     Route: 048
     Dates: start: 20100616, end: 20101210
  8. PLAVIX [Suspect]
     Route: 048
     Dates: start: 20100616, end: 20100616
  9. ZETIA [Concomitant]
     Indication: HYPERLIPIDAEMIA
     Route: 048
     Dates: start: 20100617, end: 20101210
  10. DOXAZOSIN MESYLATE [Concomitant]
     Indication: HYPERTENSION
     Route: 048
     Dates: start: 20100616, end: 20101210
  11. LIPITOR [Concomitant]
     Indication: HYPERLIPIDAEMIA
     Route: 048
     Dates: start: 20100616, end: 20101210

REACTIONS (1)
  - DEATH [None]
